FAERS Safety Report 15183326 (Version 2)
Quarter: 2018Q3

REPORT INFORMATION
  Report Type: Spontaneous
  Country: US (occurrence: US)
  Receive Date: 20180723
  Receipt Date: 20180801
  Transmission Date: 20181010
  Serious: Yes (Other)
  Sender: FDA-Public Use
  Company Number: SE-ASTRAZENECA-2018SE93626

PATIENT
  Sex: Male

DRUGS (1)
  1. RHINOCORT AQUA [Suspect]
     Active Substance: BUDESONIDE
     Dosage: 2 SPRAYS PER NOSTRIL NIGHTLY FOR THE LAST 2?3 MONTHS
     Route: 045

REACTIONS (1)
  - Epistaxis [Unknown]
